FAERS Safety Report 26079280 (Version 1)
Quarter: 2025Q4

REPORT INFORMATION
  Report Type: Spontaneous
  Country: US (occurrence: US)
  Receive Date: 20251123
  Receipt Date: 20251123
  Transmission Date: 20260117
  Serious: No
  Sender: GALPHARM INTERNATIONAL
  Company Number: US-PERRIGO-25US008935

PATIENT
  Age: 24 Year
  Sex: Female
  Weight: 68.934 kg

DRUGS (3)
  1. OPILL [Suspect]
     Active Substance: NORGESTREL
     Indication: Oral contraception
     Dosage: 0.075 MG, QD
     Route: 048
     Dates: start: 202503, end: 202504
  2. OPILL [Suspect]
     Active Substance: NORGESTREL
     Dosage: 0.075 MG, QD
     Route: 048
     Dates: start: 20250706
  3. TAKE ACTION [Concomitant]
     Active Substance: LEVONORGESTREL
     Indication: Post coital contraception
     Dosage: UNKNOWN, SINGLE
     Route: 048
     Dates: start: 20250706, end: 20250706

REACTIONS (1)
  - Intentional product use issue [Recovered/Resolved]

NARRATIVE: CASE EVENT DATE: 20250706
